FAERS Safety Report 20296305 (Version 1)
Quarter: 2022Q1

REPORT INFORMATION
  Report Type: Spontaneous
  Country: FR (occurrence: FR)
  Receive Date: 20220105
  Receipt Date: 20220105
  Transmission Date: 20220423
  Serious: Yes (Hospitalization, Other)
  Sender: FDA-Public Use
  Company Number: FR-AFSSAPS-TO20219536

PATIENT
  Age: 84 Year
  Sex: Female
  Weight: 62 kg

DRUGS (4)
  1. AMIODARONE [Suspect]
     Active Substance: AMIODARONE
     Indication: Arrhythmia
     Dosage: 200 MILLIGRAM, ONCE A DAY (1-0-0, AU LONG COURS)
     Route: 048
  2. CLARITHROMYCIN [Suspect]
     Active Substance: CLARITHROMYCIN
     Indication: Lung disorder
     Dosage: UNK
     Route: 042
  3. WARFARIN SODIUM [Suspect]
     Active Substance: WARFARIN SODIUM
     Indication: Atrial fibrillation
     Dosage: 2 DOSAGE FORM, ONCE A DAY (4MG/J)
     Route: 048
     Dates: start: 20210414, end: 20210506
  4. ALLOPURINOL [Suspect]
     Active Substance: ALLOPURINOL
     Indication: Rheumatic disorder
     Dosage: 1 DOSAGE FORM, ONCE A DAY (0-0-1, AU LONG COURS)
     Route: 048

REACTIONS (1)
  - Gastrointestinal haemorrhage [Recovered/Resolved]

NARRATIVE: CASE EVENT DATE: 20210522
